FAERS Safety Report 15936336 (Version 1)
Quarter: 2019Q1

REPORT INFORMATION
  Report Type: Spontaneous
  Country: US (occurrence: US)
  Receive Date: 20190207
  Receipt Date: 20190207
  Transmission Date: 20190417
  Serious: Yes (Other)
  Sender: FDA-Public Use
  Company Number: None

PATIENT
  Age: 69 Year
  Sex: Female
  Weight: 64.8 kg

DRUGS (16)
  1. PANTOPRAZOLE [Concomitant]
     Active Substance: PANTOPRAZOLE
  2. BENZTROPINE. [Concomitant]
     Active Substance: BENZTROPINE
  3. RISPERIDONE. [Concomitant]
     Active Substance: RISPERIDONE
  4. AMANTADINE. [Concomitant]
     Active Substance: AMANTADINE HYDROCHLORIDE
  5. MELATONIN [Concomitant]
     Active Substance: MELATONIN
  6. SUCRALAFATE [Concomitant]
  7. CAPECITABINE. [Suspect]
     Active Substance: CAPECITABINE
     Indication: GASTRIC CANCER
     Dosage: ?          OTHER FREQUENCY:BID X14 DAY;?
     Route: 048
     Dates: start: 20180919, end: 20190107
  8. PEPCID [Concomitant]
     Active Substance: FAMOTIDINE
  9. ENALAPRIL [Concomitant]
     Active Substance: ENALAPRIL
  10. VITAMIN D [Concomitant]
     Active Substance: CHOLECALCIFEROL
  11. ZYPREXA [Concomitant]
     Active Substance: OLANZAPINE
  12. ESCITALOPRAM [Concomitant]
     Active Substance: ESCITALOPRAM OXALATE
  13. HEMENATAL OB [Concomitant]
  14. REMERON [Concomitant]
     Active Substance: MIRTAZAPINE
  15. DOCUSATE [Concomitant]
     Active Substance: DOCUSATE
  16. LINZESS [Concomitant]
     Active Substance: LINACLOTIDE

REACTIONS (1)
  - Hospice care [None]

NARRATIVE: CASE EVENT DATE: 20190207
